FAERS Safety Report 15331133 (Version 1)
Quarter: 2018Q3

REPORT INFORMATION
  Report Type: Spontaneous
  Country: US (occurrence: US)
  Receive Date: 20180829
  Receipt Date: 20180829
  Transmission Date: 20181010
  Serious: No
  Sender: FDA-Public Use
  Company Number: PHEH2018US035118

PATIENT
  Age: 71 Year
  Sex: Male
  Weight: 79.83 kg

DRUGS (1)
  1. ENTRESTO [Suspect]
     Active Substance: SACUBITRIL\VALSARTAN
     Indication: LEFT VENTRICULAR FAILURE
     Dosage: 50 MG, BID
     Route: 048
     Dates: start: 20180717, end: 20180814

REACTIONS (2)
  - Diarrhoea [Recovering/Resolving]
  - Rash [Recovering/Resolving]
